FAERS Safety Report 7137399-1 (Version None)
Quarter: 2010Q4

REPORT INFORMATION
  Report Type: 
  Country: None (occurrence: None)
  Receive Date: 20101206
  Receipt Date: 20101204
  Transmission Date: 20110411
  Serious: Yes (Death, Other)
  Sender: FDA-Public Use
  Company Number: PHHY2010TZ52042

PATIENT
  Age: 1 Year
  Sex: Female

DRUGS (2)
  1. COARTEM [Suspect]
     Indication: MALARIA
  2. AMOXICILLIN [Suspect]
     Indication: MALARIA

REACTIONS (3)
  - GENERAL PHYSICAL HEALTH DETERIORATION [None]
  - PNEUMONIA [None]
  - RESPIRATORY DISTRESS [None]
